FAERS Safety Report 18332982 (Version 2)
Quarter: 2020Q4

REPORT INFORMATION
  Report Type: Spontaneous
  Country: DE (occurrence: DE)
  Receive Date: 20200930
  Receipt Date: 20201005
  Transmission Date: 20210113
  Serious: Yes (Other)
  Sender: FDA-Public Use
  Company Number: DE-ROCHE-2673623

PATIENT
  Sex: Male
  Weight: 10.6 kg

DRUGS (1)
  1. HEMLIBRA [Suspect]
     Active Substance: EMICIZUMAB-KXWH
     Indication: HAEMORRHAGE PROPHYLAXIS
     Dosage: LATEST RECEIVED DATE 16/SEP/2020
     Route: 058
     Dates: start: 20200319

REACTIONS (2)
  - Bronchitis chronic [Recovering/Resolving]
  - Obstructive airways disorder [Recovering/Resolving]
